FAERS Safety Report 8050385-2 (Version None)
Quarter: 2012Q1

REPORT INFORMATION
  Report Type: 
  Country: None (occurrence: None)
  Receive Date: 20120117
  Receipt Date: 20120109
  Transmission Date: 20120608
  Serious: Yes (Hospitalization)
  Sender: FDA-Public Use
  Company Number: AU-JNJFOC-20111108495

PATIENT
  Sex: Male
  Weight: 101 kg

DRUGS (5)
  1. GOSERELIN ACETATE [Concomitant]
     Indication: HORMONE THERAPY
     Route: 065
     Dates: start: 20100301
  2. ZOLEDRONIC ACID [Concomitant]
     Indication: CHEMOTHERAPY
     Route: 065
     Dates: start: 20100611
  3. ABIRATERONE ACETATE [Suspect]
     Indication: PROSTATE CANCER METASTATIC
     Route: 048
     Dates: start: 20110726, end: 20111116
  4. ABIRATERONE ACETATE [Suspect]
     Route: 048
  5. PREDNISOLONE [Suspect]
     Indication: PROSTATE CANCER METASTATIC
     Route: 048
     Dates: start: 20110726

REACTIONS (2)
  - HEADACHE [None]
  - DIZZINESS [None]
